FAERS Safety Report 10007232 (Version 1)
Quarter: 2014Q1

REPORT INFORMATION
  Report Type: Spontaneous
  Country: US (occurrence: US)
  Receive Date: 20140313
  Receipt Date: 20140313
  Transmission Date: 20141002
  Serious: No
  Sender: FDA-Public Use
  Company Number: US-B.I. PHARMACEUTICALS,INC./RIDGEFIELD-2014-BI-09502BP

PATIENT
  Age: 71 Year
  Sex: Female
  Weight: 94 kg

DRUGS (13)
  1. PRADAXA [Suspect]
     Indication: ATRIAL FIBRILLATION
     Dosage: 300 MG
     Route: 048
     Dates: start: 2011
  2. SOTALOL [Concomitant]
     Indication: ATRIAL FIBRILLATION
     Dosage: 160 MG
     Route: 048
  3. GABAPENTIN [Concomitant]
     Indication: FIBROMYALGIA
     Dosage: 600 MG
     Route: 048
  4. FUROSEMIDE [Concomitant]
     Indication: HYPERTENSION
     Dosage: 40 MG
     Route: 048
  5. CLONAZEPAM [Concomitant]
     Route: 048
  6. HYDROCODONE [Concomitant]
     Indication: ARTHRITIS
     Dosage: STRENGTH: 10-325 MG;
     Route: 048
  7. PHENFIBRATE [Concomitant]
     Indication: BLOOD CHOLESTEROL INCREASED
     Dosage: 160 MG
     Route: 048
  8. FLEXERIL [Concomitant]
     Indication: FIBROMYALGIA
     Route: 048
  9. ZETIA [Concomitant]
     Indication: BLOOD CHOLESTEROL INCREASED
     Route: 048
  10. METOPROLOL TARTRATE [Concomitant]
     Indication: HYPERTENSION
     Dosage: 100 MG
     Route: 048
  11. SYMBICORT [Concomitant]
     Indication: ASTHMA
     Dosage: FORMULATION:INHALATION AEROSOL;STRENGTH: 1 INHALATION; DAILY DOSE: 2 INHALATION
     Route: 055
  12. NASONEX [Concomitant]
     Indication: HYPERSENSITIVITY
     Dosage: FORMULATION:NASAL SPRAY; STRENGTH: 2 SPRAYS EACH NOSTRIL; DAILY DOSE: 4 SPRAYS EACH NOSTRIL
     Route: 045
  13. MIRALAX [Concomitant]
     Indication: CONSTIPATION
     Dosage: 17 G
     Route: 048

REACTIONS (1)
  - Atrial fibrillation [Recovered/Resolved]
